FAERS Safety Report 19100429 (Version 1)
Quarter: 2021Q2

REPORT INFORMATION
  Report Type: Spontaneous
  Country: BE (occurrence: BE)
  Receive Date: 20210407
  Receipt Date: 20210407
  Transmission Date: 20210717
  Serious: Yes (Other)
  Sender: FDA-Public Use
  Company Number: BE-SUN PHARMACEUTICAL INDUSTRIES LTD-2021R1-289588

PATIENT
  Age: 46 Year
  Sex: Female

DRUGS (4)
  1. DOXORUBICIN [Suspect]
     Active Substance: DOXORUBICIN
     Indication: PSEUDOMYXOMA PERITONEI
     Dosage: UNK (24 MG; 15 MG/M2)
     Route: 033
  2. 5?FLUOROURACIL [Suspect]
     Active Substance: FLUOROURACIL
     Indication: PSEUDOMYXOMA PERITONEI
     Dosage: UNK (1280 MG; 800 MG/M2)
     Route: 042
  3. MITOMYCIN C [Suspect]
     Active Substance: MITOMYCIN
     Indication: PSEUDOMYXOMA PERITONEI
     Dosage: UNK (24 MG; 15 MG/M2)
     Route: 033
  4. LEUCOVORIN. [Suspect]
     Active Substance: LEUCOVORIN
     Indication: PSEUDOMYXOMA PERITONEI
     Dosage: UNK (32 MG; 20 MG/M2)
     Route: 042

REACTIONS (1)
  - Encapsulating peritoneal sclerosis [Recovered/Resolved]
